FAERS Safety Report 10891678 (Version 1)
Quarter: 2015Q1

REPORT INFORMATION
  Report Type: Spontaneous
  Country: US (occurrence: US)
  Receive Date: 20150306
  Receipt Date: 20150306
  Transmission Date: 20150721
  Serious: Yes (Death)
  Sender: FDA-Public Use
  Company Number: US-BANPHARM-20153651

PATIENT
  Age: 42 Year
  Sex: Male

DRUGS (13)
  1. METHADONE [Suspect]
     Active Substance: METHADONE HYDROCHLORIDE
  2. ALPRAZOLAM. [Suspect]
     Active Substance: ALPRAZOLAM
  3. NAPROXEN UNKNOWN PRODUCT [Suspect]
     Active Substance: NAPROXEN
  4. PRAVASTATIN [Suspect]
     Active Substance: PRAVASTATIN\PRAVASTATIN SODIUM
  5. BUPRENORPHINE/NALOXONE [Suspect]
     Active Substance: BUPRENORPHINE\NALOXONE
     Route: 060
  6. PROPRANOLOL [Suspect]
     Active Substance: PROPRANOLOL\PROPRANOLOL HYDROCHLORIDE
  7. ETHANOL [Suspect]
     Active Substance: ALCOHOL
  8. LITHIUM [Suspect]
     Active Substance: LITHIUM CARBONATE
  9. MARIJUANA [Suspect]
     Active Substance: CANNABIS SATIVA SUBSP. INDICA TOP
  10. LACTOBACILLUS ACIDOPHILUS [Suspect]
     Active Substance: LACTOBACILLUS ACIDOPHILUS
  11. DIPHENHYDRAMINE UNKNOWN PRODUCT [Suspect]
     Active Substance: DIPHENHYDRAMINE
  12. CLONAZEPAM. [Suspect]
     Active Substance: CLONAZEPAM
  13. IBUPROFEN UNKNOWN PRODUCT [Suspect]
     Active Substance: IBUPROFEN

REACTIONS (1)
  - Death [Fatal]
